FAERS Safety Report 4892975-1 (Version None)
Quarter: 2006Q1

REPORT INFORMATION
  Report Type: 
  Country: None (occurrence: None)
  Receive Date: 20060126
  Receipt Date: 20050530
  Transmission Date: 20060701
  Serious: Yes (Hospitalization)
  Sender: FDA-Public Use
  Company Number: JP-MERCK-0506USA00469

PATIENT
  Age: 69 Year
  Sex: Female

DRUGS (19)
  1. PEPCID RPD [Suspect]
     Route: 048
     Dates: start: 20050408
  2. PREDNISOLONE [Concomitant]
     Route: 048
     Dates: start: 20050408, end: 20050414
  3. PREDNISOLONE [Concomitant]
     Route: 048
     Dates: start: 20050415, end: 20050421
  4. PREDNISOLONE [Concomitant]
     Route: 048
     Dates: start: 20050422, end: 20050520
  5. PREDNISOLONE [Concomitant]
     Route: 048
     Dates: start: 20050521, end: 20050601
  6. PREDNISOLONE [Concomitant]
     Route: 048
     Dates: start: 20050602, end: 20051109
  7. PREDNISOLONE [Concomitant]
     Route: 048
     Dates: start: 20051110
  8. PROGRAF [Suspect]
     Route: 048
     Dates: start: 20050501, end: 20050512
  9. PROGRAF [Suspect]
     Route: 048
     Dates: start: 20050513
  10. MESTINON [Concomitant]
     Route: 048
     Dates: start: 19990101
  11. MESTINON [Concomitant]
     Route: 048
     Dates: start: 20050408, end: 20050410
  12. MESTINON [Concomitant]
     Route: 048
     Dates: start: 20050410
  13. PERDIPINA [Concomitant]
     Route: 048
  14. KALIMATE [Concomitant]
     Route: 048
     Dates: start: 20050504, end: 20050511
  15. KALIMATE [Concomitant]
     Route: 048
     Dates: start: 20050512
  16. ALDACTONE [Suspect]
     Route: 048
     Dates: end: 20050408
  17. MARZULENE-S [Concomitant]
     Route: 048
  18. LENDORMIN [Concomitant]
     Route: 048
     Dates: start: 20050408
  19. AMARYL [Concomitant]
     Route: 048
     Dates: start: 20050711

REACTIONS (2)
  - HYPERKALAEMIA [None]
  - WHITE BLOOD CELL COUNT INCREASED [None]
